FAERS Safety Report 18184615 (Version 1)
Quarter: 2020Q3

REPORT INFORMATION
  Report Type: Other
  Country: NL (occurrence: NL)
  Receive Date: 20200824
  Receipt Date: 20200824
  Transmission Date: 20201103
  Serious: Yes (Other)
  Sender: FDA-Public Use
  Company Number: NL-ROCHE-2658034

PATIENT

DRUGS (9)
  1. DOXORUBICIN [Concomitant]
     Active Substance: DOXORUBICIN
     Dosage: DAY 2
  2. METHOTREXATE. [Concomitant]
     Active Substance: METHOTREXATE
     Dosage: DAY 1
  3. VINBLASTINE [Concomitant]
     Active Substance: VINBLASTINE
     Dosage: DAY 2
  4. PEGFILGRASTIM [Concomitant]
     Active Substance: PEGFILGRASTIM
     Dosage: DAY 3
  5. CARBOPLATIN. [Concomitant]
     Active Substance: CARBOPLATIN
     Dosage: 5 AUC DAY 1
  6. GEMCITABINE. [Concomitant]
     Active Substance: GEMCITABINE
     Dosage: DAY 1 AND 8
  7. MITOMYCIN C [Concomitant]
     Active Substance: MITOMYCIN
     Dosage: ON DAY ONE AT A DOSE OF 12 MG/M2 WITH A MAXIMUM DOSE OF 20 MG
     Route: 042
  8. CAPECITABINE. [Suspect]
     Active Substance: CAPECITABINE
     Indication: BLADDER CANCER
     Route: 048
  9. CISPLATIN. [Concomitant]
     Active Substance: CISPLATIN
     Dosage: DAY 2

REACTIONS (9)
  - Toxicity to various agents [Unknown]
  - Gastrointestinal toxicity [Unknown]
  - Ileus [Unknown]
  - Skin toxicity [Unknown]
  - Thrombocytopenia [Unknown]
  - Haematotoxicity [Unknown]
  - Hydronephrosis [Unknown]
  - Urethral stenosis [Unknown]
  - Diarrhoea [Unknown]
